FAERS Safety Report 12220388 (Version 1)
Quarter: 2016Q1

REPORT INFORMATION
  Report Type: Spontaneous
  Country: US (occurrence: None)
  Receive Date: 20160329
  Receipt Date: 20160329
  Transmission Date: 20160526
  Serious: Yes (Hospitalization)
  Sender: FDA-Public Use
  Company Number: None

PATIENT
  Age: 82 Year
  Sex: Male
  Weight: 87.4 kg

DRUGS (1)
  1. WARFARIN [Suspect]
     Active Substance: WARFARIN
     Indication: ATRIAL FIBRILLATION
     Route: 048

REACTIONS (5)
  - Muscle haemorrhage [None]
  - Haematocrit decreased [None]
  - Mobility decreased [None]
  - Dizziness postural [None]
  - International normalised ratio increased [None]

NARRATIVE: CASE EVENT DATE: 20160316
